FAERS Safety Report 4800201-4 (Version None)
Quarter: 2005Q4

REPORT INFORMATION
  Report Type: 
  Country: None (occurrence: None)
  Receive Date: 20051013
  Receipt Date: 20050909
  Transmission Date: 20060501
  Serious: Yes (Hospitalization)
  Sender: FDA-Public Use
  Company Number: 2005BI016846

PATIENT
  Age: 25 Year
  Sex: Female
  Weight: 57 kg

DRUGS (5)
  1. AVONEX [Suspect]
     Indication: MULTIPLE SCLEROSIS
     Dosage: 30 UG; QW; IM
     Route: 030
     Dates: start: 20050501
  2. L-THYROXINE [Concomitant]
  3. IBUPROFEN [Concomitant]
  4. MUSARIL [Concomitant]
  5. CERAZETTE [Concomitant]

REACTIONS (2)
  - ALOPECIA [None]
  - FALL [None]
